FAERS Safety Report 8606129-6 (Version None)
Quarter: 2012Q3

REPORT INFORMATION
  Report Type: 
  Country: None (occurrence: None)
  Receive Date: 20120820
  Receipt Date: 20120810
  Transmission Date: 20120928
  Serious: Yes (Other)
  Sender: FDA-Public Use
  Company Number: FR-ASTRAZENECA-2012SE53334

PATIENT
  Age: 28 Year
  Sex: Male
  Weight: 78 kg

DRUGS (4)
  1. SEROQUEL [Suspect]
     Route: 048
     Dates: start: 20120724, end: 20120727
  2. SEROQUEL [Suspect]
     Indication: SCHIZOAFFECTIVE DISORDER DEPRESSIVE TYPE
     Route: 048
     Dates: start: 20120720, end: 20120723
  3. ZYPREXA [Concomitant]
     Indication: BIPOLAR DISORDER
     Route: 048
     Dates: start: 20100101
  4. SOLIAN [Concomitant]
     Route: 048

REACTIONS (3)
  - ABDOMINAL RIGIDITY [None]
  - ABDOMINAL PAIN [None]
  - DIARRHOEA [None]
